FAERS Safety Report 5862468-3 (Version None)
Quarter: 2008Q3

REPORT INFORMATION
  Report Type: 
  Country: None (occurrence: None)
  Receive Date: 20080827
  Receipt Date: 20080827
  Transmission Date: 20090109
  Serious: Yes (Hospitalization)
  Sender: FDA-Public Use
  Company Number: None

PATIENT
  Sex: Male
  Weight: 100.5 kg

DRUGS (5)
  1. CYCLOPHOSPHAMIDE [Suspect]
     Dosage: 1325 MG
  2. PENTOSTATIN [Suspect]
     Dosage: 4.4 MG
  3. RITUXIMAB (MOAB C2B8 ANTI CD20, CHIMERIC) [Suspect]
     Dosage: 830 MG
  4. BACTRIM [Concomitant]
  5. LASIX [Concomitant]

REACTIONS (10)
  - BLOOD ALBUMIN DECREASED [None]
  - BLOOD CALCIUM DECREASED [None]
  - BLOOD SODIUM DECREASED [None]
  - FEBRILE NEUTROPENIA [None]
  - FLUID INTAKE REDUCED [None]
  - FLUID RETENTION [None]
  - NAUSEA [None]
  - OEDEMA PERIPHERAL [None]
  - RENAL IMPAIRMENT [None]
  - WEIGHT INCREASED [None]
